FAERS Safety Report 7551411-7 (Version None)
Quarter: 2011Q2

REPORT INFORMATION
  Report Type: 
  Country: None (occurrence: None)
  Receive Date: 20110616
  Receipt Date: 20110613
  Transmission Date: 20111010
  Serious: Yes (Hospitalization)
  Sender: FDA-Public Use
  Company Number: JP-ROCHE-772378

PATIENT
  Sex: Male

DRUGS (3)
  1. ROCEPHIN [Suspect]
     Indication: PAROTITIS
     Route: 041
     Dates: start: 20110225, end: 20110225
  2. SOLU-MEDROL [Concomitant]
     Route: 042
     Dates: start: 20110225
  3. CELESTAMINE TAB [Concomitant]
     Route: 048
     Dates: start: 20110224, end: 20110225

REACTIONS (1)
  - ANAPHYLACTOID REACTION [None]
